FAERS Safety Report 15326232 (Version 1)
Quarter: 2018Q3

REPORT INFORMATION
  Report Type: Spontaneous
  Country: US (occurrence: US)
  Receive Date: 20180828
  Receipt Date: 20180828
  Transmission Date: 20181010
  Serious: No
  Sender: FDA-Public Use
  Company Number: US-BAUSCH-BL-2018-017510

PATIENT
  Age: 37 Year
  Sex: Female
  Weight: 62.65 kg

DRUGS (2)
  1. VISUDYNE [Suspect]
     Active Substance: VERTEPORFIN
     Indication: CHOROIDAL HAEMANGIOMA
     Route: 042
     Dates: start: 20180507, end: 20180507
  2. VISUDYNE [Suspect]
     Active Substance: VERTEPORFIN
     Indication: OFF LABEL USE

REACTIONS (7)
  - Pallor [Recovering/Resolving]
  - Burns second degree [Recovered/Resolved]
  - Pain in extremity [Recovered/Resolved]
  - Erythema [Recovered/Resolved]
  - Treatment noncompliance [Unknown]
  - Off label use [Recovered/Resolved]
  - Urticaria [Recovered/Resolved]

NARRATIVE: CASE EVENT DATE: 201805
